FAERS Safety Report 13255406 (Version 1)
Quarter: 2017Q1

REPORT INFORMATION
  Report Type: Spontaneous
  Country: US (occurrence: US)
  Receive Date: 20170221
  Receipt Date: 20170221
  Transmission Date: 20170428
  Serious: No
  Sender: FDA-Public Use
  Company Number: US-TEVA-726730USA

PATIENT
  Sex: Male

DRUGS (3)
  1. OXYMORPHONE HYDROCHLORIDE. [Suspect]
     Active Substance: OXYMORPHONE HYDROCHLORIDE
     Indication: ARTHRALGIA
  2. OXYMORPHONE HYDROCHLORIDE. [Suspect]
     Active Substance: OXYMORPHONE HYDROCHLORIDE
     Indication: ARTHRALGIA
  3. OXYMORPHONE HYDROCHLORIDE. [Suspect]
     Active Substance: OXYMORPHONE HYDROCHLORIDE
     Indication: MUSCULOSKELETAL PAIN

REACTIONS (5)
  - Product substitution issue [Unknown]
  - Product quality issue [Unknown]
  - Drug ineffective [Unknown]
  - Incorrect route of drug administration [Unknown]
  - Product physical issue [Unknown]
